FAERS Safety Report 9224831 (Version 1)
Quarter: 2013Q2

REPORT INFORMATION
  Report Type: Spontaneous
  Country: US (occurrence: None)
  Receive Date: 20130409
  Receipt Date: 20130409
  Transmission Date: 20140414
  Serious: Yes (Other)
  Sender: FDA-Public Use
  Company Number: VAL_02276_2013

PATIENT
  Sex: Male

DRUGS (2)
  1. METOPROLOL [Suspect]
     Indication: PRODUCT USED FOR UNKNOWN INDICATION
     Dosage: (DF) (UNKNOWN UNTIL NOT CONTINUING)?
  2. METOPROLOL [Suspect]
     Dosage: (DF) (UNKNOWN UNTIL NOT CONTINUING)?

REACTIONS (1)
  - Atrial fibrillation [None]
